FAERS Safety Report 25237729 (Version 2)
Quarter: 2025Q3

REPORT INFORMATION
  Report Type: Spontaneous
  Country: US (occurrence: US)
  Receive Date: 20250425
  Receipt Date: 20250827
  Transmission Date: 20251020
  Serious: No
  Sender: UCB
  Company Number: US-UCBSA-2025010931

PATIENT
  Sex: Female

DRUGS (1)
  1. RYSTIGGO [Suspect]
     Active Substance: ROZANOLIXIZUMAB-NOLI
     Indication: Product used for unknown indication
     Dates: start: 20250211

REACTIONS (4)
  - Head discomfort [Unknown]
  - Musculoskeletal discomfort [Unknown]
  - Vision blurred [Unknown]
  - Dysarthria [Unknown]

NARRATIVE: CASE EVENT DATE: 20250201
